FAERS Safety Report 5241437-0 (Version None)
Quarter: 2007Q1

REPORT INFORMATION
  Report Type: 
  Country: None (occurrence: None)
  Receive Date: 20070220
  Receipt Date: 20070209
  Transmission Date: 20070707
  Serious: Yes (Other)
  Sender: FDA-Public Use
  Company Number: FR-AVENTIS-200312131FR

PATIENT
  Age: 22 Year
  Sex: Male

DRUGS (4)
  1. KETEK [Suspect]
     Indication: TONSILLITIS
     Route: 048
     Dates: start: 20021101, end: 20021101
  2. MESTINON [Concomitant]
     Indication: MYASTHENIA GRAVIS
     Route: 048
  3. HEXASPRAY [Concomitant]
     Indication: TONSILLITIS
     Dates: start: 20021101
  4. SURGAM [Concomitant]
     Route: 048

REACTIONS (4)
  - ASTHENIA [None]
  - FATIGUE [None]
  - MUSCULAR WEAKNESS [None]
  - MYASTHENIA GRAVIS [None]
